FAERS Safety Report 8571447-7 (Version None)
Quarter: 2012Q3

REPORT INFORMATION
  Report Type: 
  Country: None (occurrence: None)
  Receive Date: 20120806
  Receipt Date: 20120730
  Transmission Date: 20120928
  Serious: Yes (Other)
  Sender: FDA-Public Use
  Company Number: 2012SP002132

PATIENT
  Age: 84 Year
  Sex: Female

DRUGS (3)
  1. XOPENEX [Suspect]
     Route: 055
  2. XOPENEX [Suspect]
     Indication: PULMONARY FIBROSIS
     Route: 055
  3. ALL OTHER THERAPEUTIC PRODUCTS [Concomitant]
     Indication: PRODUCT USED FOR UNKNOWN INDICATION

REACTIONS (2)
  - CEREBROVASCULAR ACCIDENT [None]
  - DRUG INEFFECTIVE [None]
